FAERS Safety Report 6299001-0 (Version None)
Quarter: 2009Q3

REPORT INFORMATION
  Report Type: 
  Country: None (occurrence: None)
  Receive Date: 20090806
  Receipt Date: 20090728
  Transmission Date: 20100115
  Serious: Yes (Other)
  Sender: FDA-Public Use
  Company Number: PHHY2009AU31064

PATIENT
  Age: 60 Year
  Sex: Female

DRUGS (9)
  1. COMTAN [Suspect]
     Dosage: 200 MG, 5QD
     Route: 048
     Dates: start: 20090501
  2. MADOPAR [Concomitant]
  3. MIRTAZAPINE [Concomitant]
  4. BUPRENORPHINE HCL [Concomitant]
  5. LIPITOR [Concomitant]
  6. SOTALOL HCL [Concomitant]
  7. SYMMETREL [Concomitant]
  8. AVAPRO [Concomitant]
  9. ALPHAPRESS [Concomitant]

REACTIONS (3)
  - FEELING ABNORMAL [None]
  - SUICIDAL IDEATION [None]
  - TREMOR [None]
